FAERS Safety Report 5415509-1 (Version None)
Quarter: 2007Q3

REPORT INFORMATION
  Report Type: 
  Country: None (occurrence: None)
  Receive Date: 20070815
  Receipt Date: 20070621
  Transmission Date: 20080115
  Serious: Yes (Other)
  Sender: FDA-Public Use
  Company Number: US-PURDUE-USA_2007_0028014

PATIENT
  Sex: Female
  Weight: 102 kg

DRUGS (1)
  1. OXYCONTIN [Suspect]
     Indication: BACK PAIN
     Dosage: 140 MG, TID
     Dates: start: 19970601, end: 20000207

REACTIONS (5)
  - CARDIAC DISORDER [None]
  - DRUG ABUSER [None]
  - INSOMNIA [None]
  - MENTAL IMPAIRMENT [None]
  - WEIGHT DECREASED [None]
